FAERS Safety Report 7205436-1 (Version None)
Quarter: 2010Q4

REPORT INFORMATION
  Report Type: 
  Country: None (occurrence: None)
  Receive Date: 20101231
  Receipt Date: 20101220
  Transmission Date: 20110411
  Serious: Yes (Other)
  Sender: FDA-Public Use
  Company Number: PHHY2009PL31205

PATIENT
  Sex: Female
  Weight: 55 kg

DRUGS (4)
  1. SANDOSTATIN [Suspect]
     Indication: ACROMEGALY
     Dosage: 30 MG, QMO
     Route: 030
     Dates: start: 20080801, end: 20090626
  2. SANDOSTATIN [Suspect]
     Dosage: 30 MG, QMO
     Route: 030
     Dates: start: 20100601
  3. NORPROLAC [Concomitant]
     Dosage: 75 MG/DAY
     Route: 048
     Dates: start: 20080801, end: 20090626
  4. NORPROLAC [Concomitant]
     Dosage: 37.5 MG/DAY
     Route: 048
     Dates: start: 20080826

REACTIONS (3)
  - CAESAREAN SECTION [None]
  - DRUG EXPOSURE DURING PREGNANCY [None]
  - NORMAL NEWBORN [None]
